FAERS Safety Report 4629882-5 (Version None)
Quarter: 2005Q2

REPORT INFORMATION
  Report Type: 
  Country: None (occurrence: None)
  Receive Date: 20050406
  Receipt Date: 20050322
  Transmission Date: 20051028
  Serious: Yes (Life-Threatening, Hospitalization)
  Sender: FDA-Public Use
  Company Number: DE_050315539

PATIENT
  Age: 54 Year
  Sex: Female

DRUGS (5)
  1. CYMBALTA [Suspect]
     Indication: BIPOLAR I DISORDER
     Dosage: 60 MG DAY
     Dates: start: 20050301, end: 20050314
  2. CYMBALTA [Suspect]
     Indication: PSYCHOTIC DISORDER
     Dosage: 60 MG DAY
     Dates: start: 20050301, end: 20050314
  3. TAXIKLAN (PERAZINE) [Concomitant]
  4. DIPIPERON (PIPAMPERONE HYDROCHLORIDE) [Concomitant]
  5. LORAZEPAM [Concomitant]

REACTIONS (1)
  - VENTRICULAR FIBRILLATION [None]
